FAERS Safety Report 4343688-6 (Version None)
Quarter: 2004Q2

REPORT INFORMATION
  Report Type: 
  Country: None (occurrence: None)
  Receive Date: 20040422
  Receipt Date: 20040413
  Transmission Date: 20050107
  Serious: Yes (Other)
  Sender: FDA-Public Use
  Company Number: 200411194EU

PATIENT
  Age: 57 Year
  Sex: Male

DRUGS (7)
  1. DOCETAXEL [Suspect]
     Indication: PROSTATE CANCER
     Route: 042
     Dates: start: 20031114, end: 20040318
  2. ESTRAMUSTINE [Suspect]
     Indication: PROSTATE CANCER
     Route: 048
     Dates: start: 20031113, end: 20040319
  3. CELECOXIB [Suspect]
     Indication: PROSTATE CANCER
     Route: 048
     Dates: start: 20031113, end: 20040319
  4. DIANBEN [Concomitant]
     Route: 048
     Dates: start: 20020101
  5. ENALAPRIL MALEATE [Concomitant]
     Route: 048
     Dates: start: 20020101
  6. HIDROSALURETIL [Concomitant]
     Route: 048
     Dates: start: 20030101
  7. PREVENCOR [Concomitant]
     Route: 048
     Dates: start: 20020101

REACTIONS (6)
  - ERYTHEMA [None]
  - EYE PRURITUS [None]
  - OEDEMA [None]
  - ONYCHOLYSIS [None]
  - PRURIGO [None]
  - TOXIC EPIDERMAL NECROLYSIS [None]
